FAERS Safety Report 14490935 (Version 2)
Quarter: 2018Q1

REPORT INFORMATION
  Report Type: Spontaneous
  Country: US (occurrence: US)
  Receive Date: 20180206
  Receipt Date: 20180208
  Transmission Date: 20180509
  Serious: No
  Sender: FDA-Public Use
  Company Number: US-PFIZER INC-2018047844

PATIENT
  Age: 62 Year
  Sex: Female
  Weight: 75.52 kg

DRUGS (1)
  1. XELJANZ XR [Suspect]
     Active Substance: TOFACITINIB CITRATE
     Indication: RHEUMATOID ARTHRITIS
     Dosage: 11 MG, ONCE DAILY
     Route: 048
     Dates: start: 20180122, end: 20180126

REACTIONS (2)
  - Swollen tongue [Recovering/Resolving]
  - Oral mucosal blistering [Recovering/Resolving]
